FAERS Safety Report 25283820 (Version 2)
Quarter: 2025Q2

REPORT INFORMATION
  Report Type: Spontaneous
  Country: US (occurrence: US)
  Receive Date: 20250508
  Receipt Date: 20250530
  Transmission Date: 20250716
  Serious: No
  Sender: ABBVIE
  Company Number: US-ABBVIE-6260175

PATIENT
  Age: 30 Year

DRUGS (2)
  1. KYBELLA [Suspect]
     Active Substance: DEOXYCHOLIC ACID
     Indication: Product used for unknown indication
     Route: 058
     Dates: start: 20210108, end: 20210108
  2. KYBELLA [Suspect]
     Active Substance: DEOXYCHOLIC ACID
     Indication: Product used for unknown indication
     Route: 058
     Dates: start: 2022, end: 2022

REACTIONS (6)
  - Scar [Unknown]
  - Drug ineffective [Unknown]
  - Fat tissue increased [Unknown]
  - Emotional distress [Unknown]
  - Adverse drug reaction [Unknown]
  - Emotional disorder [Unknown]

NARRATIVE: CASE EVENT DATE: 20250101
